FAERS Safety Report 16203174 (Version 1)
Quarter: 2019Q2

REPORT INFORMATION
  Report Type: Spontaneous
  Country: US (occurrence: US)
  Receive Date: 20190312
  Receipt Date: 20190312
  Transmission Date: 20190711
  Serious: Yes (Hospitalization)
  Sender: FDA-Public Use
  Company Number: None

PATIENT
  Age: 88 Year
  Sex: Female

DRUGS (7)
  1. PORTONIX [Concomitant]
  2. DICYCLOMINE [Concomitant]
     Active Substance: DICYCLOMINE HYDROCHLORIDE
  3. DIAZEPAM. [Concomitant]
     Active Substance: DIAZEPAM
  4. SYNTHROID [Concomitant]
     Active Substance: LEVOTHYROXINE SODIUM
  5. CAPECITABINE 500 MG TAB ACCO [Suspect]
     Active Substance: CAPECITABINE
     Indication: ADENOCARCINOMA GASTRIC
     Dosage: ?          OTHER FREQUENCY:BID 14 DAYS ;?
     Route: 048
     Dates: start: 20181015
  6. TARTRATE [Concomitant]
  7. METOPROLOL. [Concomitant]
     Active Substance: METOPROLOL

REACTIONS (15)
  - Pharyngeal swelling [None]
  - Alopecia [None]
  - Onychoclasis [None]
  - Decreased appetite [None]
  - Dizziness [None]
  - Weight decreased [None]
  - Vertigo [None]
  - Vomiting [None]
  - Throat tightness [None]
  - Skin discolouration [None]
  - Malaise [None]
  - Hypertension [None]
  - Diarrhoea [None]
  - Pain [None]
  - Fatigue [None]
